FAERS Safety Report 24596329 (Version 1)
Quarter: 2024Q4

REPORT INFORMATION
  Report Type: Spontaneous
  Country: US (occurrence: US)
  Receive Date: 20241110
  Receipt Date: 20241110
  Transmission Date: 20250115
  Serious: No
  Sender: SANOFI AVENTIS
  Company Number: US-SA-2024SA302954

PATIENT
  Sex: Female

DRUGS (1)
  1. DUPIXENT [Suspect]
     Active Substance: DUPILUMAB
     Dosage: UNK

REACTIONS (7)
  - Hypoacusis [Unknown]
  - Migraine [Unknown]
  - Chest pain [Unknown]
  - Pain [Unknown]
  - Pain in extremity [Unknown]
  - Urticaria [Unknown]
  - Arthralgia [Unknown]
